FAERS Safety Report 6332547-5 (Version None)
Quarter: 2009Q3

REPORT INFORMATION
  Report Type: 
  Country: None (occurrence: None)
  Receive Date: 20090828
  Receipt Date: 20090819
  Transmission Date: 20100115
  Serious: Yes (Disabling)
  Sender: FDA-Public Use
  Company Number: US-ASTRAZENECA-2009SE09375

PATIENT
  Age: 30 Year
  Sex: Female

DRUGS (1)
  1. SEROQUEL XR [Suspect]

REACTIONS (1)
  - AGITATION [None]
